FAERS Safety Report 8775845 (Version 2)
Quarter: 2013Q4

REPORT INFORMATION
  Report Type: Spontaneous
  Country: JP (occurrence: JP)
  Receive Date: 20120910
  Receipt Date: 20131106
  Transmission Date: 20140711
  Serious: Yes (Life-Threatening, Hospitalization)
  Sender: FDA-Public Use
  Company Number: JP-009507513-1202USA01050

PATIENT
  Age: 74 Year
  Sex: Male
  Weight: 47 kg

DRUGS (11)
  1. JANUVIA TABLETS 50MG [Suspect]
     Indication: DIABETES MELLITUS MANAGEMENT
     Dosage: 50 MG, QD
     Route: 048
     Dates: start: 20111214, end: 20120122
  2. JANUVIA TABLETS 50MG [Suspect]
     Indication: BLOOD GLUCOSE
  3. EPALRESTAT [Concomitant]
     Dosage: 150 MG, TID
     Route: 048
  4. ARTIST [Concomitant]
     Dosage: 0.5 DF, QD
     Route: 048
  5. PLETAAL [Concomitant]
     Dosage: 200 MG, BID
     Route: 048
  6. VASOLAN [Concomitant]
     Dosage: 80 MG, BID
     Route: 048
  7. WARFARIN [Concomitant]
     Dosage: DOSAGE IS UNCERTAIN DURING A DAY
     Route: 048
  8. URSO [Concomitant]
     Dosage: DOSAGE WAS UNCERTAIN DURING A DAY
     Route: 048
  9. TAKEPRON [Concomitant]
     Dosage: DOSAGE IS UNCERTAING DURING A DAY
     Route: 048
  10. ASPENON [Concomitant]
     Dosage: DOSAGE WAS UNCERTAING DURING A DAY
     Route: 048
  11. GASMOTIN [Concomitant]
     Dosage: DOSAGE WAS UNCERTAIN DURING A DAY
     Route: 048

REACTIONS (1)
  - Interstitial lung disease [Recovered/Resolved]
